FAERS Safety Report 5417813-X (Version None)
Quarter: 2007Q3

REPORT INFORMATION
  Report Type: 
  Country: None (occurrence: None)
  Receive Date: 20070817
  Receipt Date: 20070814
  Transmission Date: 20080115
  Serious: Yes (Other)
  Sender: FDA-Public Use
  Company Number: PHNU2007DE01998

PATIENT
  Sex: Male
  Weight: 85 kg

DRUGS (10)
  1. ZOMETA [Suspect]
     Indication: METASTASES TO BONE
     Dosage: 4 MG, QMO
     Dates: start: 20040225
  2. CALCIUM CHLORIDE [Concomitant]
     Dosage: 1 DF, QD
     Route: 065
     Dates: start: 20040225
  3. VITAMIN D [Concomitant]
     Dosage: 1 DF, QD
     Route: 065
     Dates: start: 20040225
  4. TRENANTONE [Concomitant]
     Indication: PROSTATE CANCER METASTATIC
     Dosage: 1 DF, Q3MO
     Dates: start: 20040122
  5. LIPIDIL [Concomitant]
     Indication: HYPERLIPIDAEMIA
     Dosage: 160 MG/DAY
     Route: 048
     Dates: start: 19920101
  6. VENTOLAIR [Concomitant]
     Indication: ASTHMA
     Dosage: 2 DF, BID
     Dates: start: 20000101
  7. APSOMOL [Concomitant]
     Indication: ASTHMA
     Dosage: UNK, PRN
     Dates: start: 20000101, end: 20070101
  8. GLIBEN [Concomitant]
     Indication: DIABETES MELLITUS
     Dosage: 3.5 UNK, UNK
     Route: 065
     Dates: start: 20050101
  9. AZOPT [Concomitant]
     Indication: GLAUCOMA
     Dosage: 1 DRP, BID
     Dates: start: 20070101
  10. SELEN E-VITAMIN [Concomitant]
     Indication: PROSTATE CANCER METASTATIC
     Route: 065
     Dates: start: 20050101

REACTIONS (6)
  - IMPAIRED HEALING [None]
  - ORAL SURGERY [None]
  - OSTEONECROSIS [None]
  - PAIN IN JAW [None]
  - TOOTH EXTRACTION [None]
  - TOOTH FRACTURE [None]
